FAERS Safety Report 8789874 (Version 2)
Quarter: 2013Q1

REPORT INFORMATION
  Report Type: Spontaneous
  Country: AR (occurrence: AR)
  Receive Date: 20120917
  Receipt Date: 20130109
  Transmission Date: 20140127
  Serious: Yes (Other)
  Sender: FDA-Public Use
  Company Number: AR-PFIZER INC-2012226626

PATIENT
  Age: 16 Month
  Sex: Female

DRUGS (1)
  1. RAPAMUNE [Suspect]
     Indication: LYMPHANGIOSARCOMA
     Dosage: 0.5 MG, 1X/DAY
     Route: 048
     Dates: start: 20110923, end: 201208

REACTIONS (3)
  - Lymphangiosarcoma [Not Recovered/Not Resolved]
  - Disease progression [Not Recovered/Not Resolved]
  - Drug ineffective for unapproved indication [Unknown]
